FAERS Safety Report 8502094-0 (Version None)
Quarter: 2012Q2

REPORT INFORMATION
  Report Type: 
  Country: None (occurrence: None)
  Receive Date: 20120405
  Receipt Date: 20101018
  Transmission Date: 20120825
  Serious: Yes (Other)
  Sender: FDA-Public Use
  Company Number: PHHY2010US65812

PATIENT
  Age: 82 Year
  Sex: Female
  Weight: 61.7 kg

DRUGS (1)
  1. RECLAST [Suspect]
     Indication: OSTEOPOROSIS POSTMENOPAUSAL
     Dosage: 5 MG/100 ML, ONCE YEARLY, INTRAVENOUS
     Route: 042
     Dates: start: 20100917

REACTIONS (1)
  - BLOOD CREATININE INCREASED [None]
